FAERS Safety Report 15622859 (Version 1)
Quarter: 2018Q4

REPORT INFORMATION
  Report Type: Spontaneous
  Country: CH (occurrence: CH)
  Receive Date: 20181115
  Receipt Date: 20181115
  Transmission Date: 20190205
  Serious: Yes (Hospitalization)
  Sender: FDA-Public Use
  Company Number: CH-JAZZ-2018-CH-016287

PATIENT
  Age: 26 Year
  Sex: Female

DRUGS (26)
  1. CYTOSAR [Suspect]
     Active Substance: CYTARABINE
     Indication: LYMPHOCYTIC LEUKAEMIA
     Dosage: 30 MG, (TOTAL)
     Route: 037
     Dates: start: 20170904, end: 20170904
  2. SPIRICORT [Concomitant]
     Active Substance: PREDNISOLONE
     Dosage: 100 MG, UNK
     Route: 048
  3. SOLU-MEDROL [Concomitant]
     Active Substance: METHYLPREDNISOLONE SODIUM SUCCINATE
     Indication: SUPPORTIVE CARE
     Dosage: UNK
  4. MABTHERA [Suspect]
     Active Substance: RITUXIMAB
     Dosage: 650 MG (TOTAL)
     Route: 042
     Dates: start: 20170912, end: 20170912
  5. VINCRISTIN [Suspect]
     Active Substance: VINCRISTINE
     Dosage: 2 MG (TOTAL)
     Route: 042
     Dates: start: 20170918, end: 20170918
  6. ASPARAGINASE [Suspect]
     Active Substance: ASPARAGINASE
     Dosage: 9960 IU
     Route: 065
     Dates: start: 20170923, end: 20170923
  7. METHOTREXATE. [Suspect]
     Active Substance: METHOTREXATE
     Dosage: 15 MG TOTAL
     Route: 037
     Dates: start: 20170912, end: 20170912
  8. VINCRISTIN [Suspect]
     Active Substance: VINCRISTINE
     Indication: LYMPHOCYTIC LEUKAEMIA
     Dosage: 2 MG (TOTAL)
     Route: 042
     Dates: start: 20170904, end: 20170904
  9. UROMITEXAN [Suspect]
     Active Substance: MESNA
     Indication: LYMPHOCYTIC LEUKAEMIA
     Dosage: 1275 MG (TOTAL)
     Route: 042
     Dates: start: 20170904, end: 20170904
  10. SOLU-MEDROL [Concomitant]
     Active Substance: METHYLPREDNISOLONE SODIUM SUCCINATE
     Indication: LYMPHOCYTIC LEUKAEMIA
     Dosage: UNK
     Route: 037
  11. ASPARAGINASE [Suspect]
     Active Substance: ASPARAGINASE
     Dosage: 9960 IU
     Route: 065
     Dates: start: 20170925, end: 20170925
  12. ASPARAGINASE [Suspect]
     Active Substance: ASPARAGINASE
     Dosage: 9960 IU
     Route: 065
     Dates: start: 20170927, end: 20170927
  13. MABTHERA [Suspect]
     Active Substance: RITUXIMAB
     Dosage: 650 MG (TOTAL)
     Route: 042
     Dates: start: 20170905, end: 20170905
  14. MABTHERA [Suspect]
     Active Substance: RITUXIMAB
     Dosage: 650 MG (TOTAL)
     Route: 042
     Dates: start: 20170921, end: 20170921
  15. METHOTREXATE. [Suspect]
     Active Substance: METHOTREXATE
     Dosage: 15 MG TOTAL
     Route: 037
     Dates: start: 20170904, end: 20170904
  16. ENDOXAN [Suspect]
     Active Substance: CYCLOPHOSPHAMIDE
     Dosage: 1245 MG (TOTAL)
     Route: 042
     Dates: start: 20170918, end: 20170918
  17. DAUNOBLASTIN [Suspect]
     Active Substance: DAUNORUBICIN HYDROCHLORIDE
     Dosage: 53.12 MG, (TOTAL)
     Route: 042
     Dates: start: 20170918, end: 20170919
  18. VINCRISTIN [Suspect]
     Active Substance: VINCRISTINE
     Dosage: 2 MG (TOTAL)
     Route: 042
     Dates: start: 20170911, end: 20170911
  19. ENDOXAN [Suspect]
     Active Substance: CYCLOPHOSPHAMIDE
     Indication: LYMPHOCYTIC LEUKAEMIA
     Dosage: 1275 MG (TOTAL)
     Route: 042
     Dates: start: 20170904, end: 20170904
  20. UROMITEXAN [Suspect]
     Active Substance: MESNA
     Dosage: 1250 MG (TOTAL)
     Route: 042
     Dates: start: 20170918, end: 20170918
  21. SPIRICORT [Concomitant]
     Active Substance: PREDNISOLONE
     Dosage: UNK
  22. METHOTREXATE. [Suspect]
     Active Substance: METHOTREXATE
     Indication: LYMPHOCYTIC LEUKAEMIA
     Dosage: 15 MG (TOTAL)
     Route: 037
     Dates: start: 20170830, end: 20170830
  23. DAUNOBLASTIN [Suspect]
     Active Substance: DAUNORUBICIN HYDROCHLORIDE
     Indication: LYMPHOCYTIC LEUKAEMIA
     Dosage: 90.53 MG, (TOTAL)
     Route: 042
     Dates: start: 20170904, end: 20170906
  24. CYTOSAR [Suspect]
     Active Substance: CYTARABINE
     Dosage: 30 MG, (TOTAL)
     Route: 037
     Dates: start: 20170912, end: 20170912
  25. ASPARAGINASE [Suspect]
     Active Substance: ASPARAGINASE
     Indication: LYMPHOCYTIC LEUKAEMIA
     Dosage: 9960 IU
     Route: 065
     Dates: start: 20170918, end: 20170918
  26. MABTHERA [Suspect]
     Active Substance: RITUXIMAB
     Indication: LYMPHOCYTIC LEUKAEMIA
     Dosage: 650 MG (TOTAL)
     Route: 042
     Dates: start: 20170831, end: 20170831

REACTIONS (2)
  - Subileus [Recovered/Resolved]
  - Ammonia increased [Recovering/Resolving]

NARRATIVE: CASE EVENT DATE: 20170921
